FAERS Safety Report 8813595 (Version 2)
Quarter: 2012Q4

REPORT INFORMATION
  Report Type: 
  Country: DE (occurrence: DE)
  Receive Date: 20120927
  Receipt Date: 20121107
  Transmission Date: 20130627
  Serious: Yes (Other)
  Sender: FDA-Public Use
  Company Number: DE-BRISTOL-MYERS SQUIBB COMPANY-17000548

PATIENT
  Age: 49 Year
  Sex: Male

DRUGS (4)
  1. ABILIFY [Suspect]
     Indication: SCHIZOPHRENIFORM DISORDER
     Dosage: 06May12-10May12: 10Mg/day
     Dates: start: 20120405, end: 201204
  2. ABILIFY [Suspect]
     Indication: MANIA
     Dosage: 06May12-10May12: 10Mg/day
     Dates: start: 20120405, end: 201204
  3. OLANZAPINE [Suspect]
     Indication: PSYCHOTIC DISORDER
     Dosage: for a longer time
     Dates: start: 2006
  4. FLUNITRAZEPAM [Suspect]
     Indication: PSYCHOTIC DISORDER
     Dates: start: 2006, end: 201204

REACTIONS (1)
  - Mania [Unknown]
